FAERS Safety Report 17129309 (Version 1)
Quarter: 2019Q4

REPORT INFORMATION
  Report Type: Spontaneous
  Country: US (occurrence: US)
  Receive Date: 20191209
  Receipt Date: 20191209
  Transmission Date: 20200122
  Serious: No
  Sender: FDA-Public Use
  Company Number: US-ENCOREDERM-2019-US-017004

PATIENT
  Age: 44 Year
  Sex: Female
  Weight: 70.31 kg

DRUGS (2)
  1. IMPOYZ [Suspect]
     Active Substance: CLOBETASOL PROPIONATE
     Indication: ECZEMA
     Dosage: APPLIED TOPICALLY AS NEEDED TO SPOT TREAT ON BODY AND NOT FACE
     Route: 061
     Dates: start: 20190827
  2. PREDNISONE. [Concomitant]
     Active Substance: PREDNISONE

REACTIONS (1)
  - Dermatitis allergic [Recovering/Resolving]

NARRATIVE: CASE EVENT DATE: 20190827
